FAERS Safety Report 7931186-X (Version None)
Quarter: 2011Q4

REPORT INFORMATION
  Report Type: 
  Country: None (occurrence: None)
  Receive Date: 20111121
  Receipt Date: 20111109
  Transmission Date: 20120403
  Serious: Yes (Hospitalization, Other)
  Sender: FDA-Public Use
  Company Number: CH-ELI_LILLY_AND_COMPANY-CH201110006832

PATIENT
  Age: 67 Year
  Sex: Female
  Weight: 65 kg

DRUGS (8)
  1. PANTOPRAZOLE [Concomitant]
     Indication: GASTRIC DISORDER
     Route: 048
  2. ASPIRIN [Concomitant]
     Route: 048
  3. TARGIN [Concomitant]
     Indication: PAIN
     Route: 048
  4. OXYCODONE HCL [Concomitant]
     Indication: PAIN
     Route: 048
  5. FORTEO [Suspect]
     Indication: OSTEOPOROSIS
     Dosage: 20 UG, QD
     Route: 058
     Dates: start: 20111018, end: 20111022
  6. EFFIENT [Concomitant]
     Indication: ANTICOAGULANT THERAPY
     Route: 048
  7. ATORVASTATIN CALCIUM [Concomitant]
     Indication: BLOOD CHOLESTEROL
     Route: 048
  8. CONCOR [Concomitant]
     Indication: CARDIOVASCULAR DISORDER
     Route: 048

REACTIONS (7)
  - BLOOD PRESSURE INCREASED [None]
  - HEART RATE DECREASED [None]
  - CHEST DISCOMFORT [None]
  - ANGINA PECTORIS [None]
  - CARDIAC VALVE DISEASE [None]
  - NAUSEA [None]
  - DYSPNOEA [None]
